FAERS Safety Report 9455140 (Version 1)
Quarter: 2013Q3

REPORT INFORMATION
  Report Type: Spontaneous
  Country: BR (occurrence: BR)
  Receive Date: 20130813
  Receipt Date: 20130813
  Transmission Date: 20140515
  Serious: Yes (Hospitalization)
  Sender: FDA-Public Use
  Company Number: BR-ASTRAZENECA-2013SE62013

PATIENT
  Age: 87 Year
  Sex: Male
  Weight: 81 kg

DRUGS (4)
  1. ATACAND HCT [Suspect]
     Indication: HYPERTENSION
     Dosage: 16/12.5MG, TWO TIMES A DAY
     Route: 048
     Dates: start: 2009
  2. OMEPRAZOL [Suspect]
     Indication: GASTRIC DISORDER
     Route: 048
  3. PURAN T4 [Concomitant]
     Indication: THYROIDECTOMY
  4. SIMVASTATIN [Concomitant]
     Indication: BLOOD CHOLESTEROL INCREASED

REACTIONS (1)
  - Myocardial infarction [Recovered/Resolved]
